FAERS Safety Report 10273892 (Version 1)
Quarter: 2014Q3

REPORT INFORMATION
  Report Type: Spontaneous
  Country: US (occurrence: US)
  Receive Date: 20140702
  Receipt Date: 20140702
  Transmission Date: 20150326
  Serious: Yes (Other)
  Sender: FDA-Public Use
  Company Number: US-BRISTOL-MYERS SQUIBB COMPANY-20951075

PATIENT
  Age: 68 Year
  Sex: Male
  Weight: 95.24 kg

DRUGS (3)
  1. LANTUS [Concomitant]
     Active Substance: INSULIN GLARGINE
  2. HUMALOG [Concomitant]
     Active Substance: INSULIN LISPRO
  3. FARXIGA [Suspect]
     Active Substance: DAPAGLIFLOZIN PROPANEDIOL
     Dosage: FARXIGA 5 MG TABS
     Route: 048
     Dates: start: 20140603

REACTIONS (2)
  - Diarrhoea [Unknown]
  - Melaena [Unknown]

NARRATIVE: CASE EVENT DATE: 20140603
